FAERS Safety Report 8534163-3 (Version None)
Quarter: 2012Q3

REPORT INFORMATION
  Report Type: 
  Country: None (occurrence: None)
  Receive Date: 20120724
  Receipt Date: 20120711
  Transmission Date: 20120928
  Serious: Yes (Other)
  Sender: FDA-Public Use
  Company Number: US-ACTELION-A-NJ2012-59627

PATIENT

DRUGS (2)
  1. TRACLEER [Suspect]
     Indication: PULMONARY ARTERIAL HYPERTENSION
     Dosage: UNK
     Route: 048
  2. TIKOSYN [Concomitant]

REACTIONS (10)
  - CONFUSIONAL STATE [None]
  - CHEST PAIN [None]
  - MUSCULOSKELETAL CHEST PAIN [None]
  - ANAESTHETIC COMPLICATION [None]
  - BALANCE DISORDER [None]
  - CARDIAC OPERATION [None]
  - MUSCULAR WEAKNESS [None]
  - FALL [None]
  - VOMITING [None]
  - DIARRHOEA [None]
